FAERS Safety Report 10347849 (Version 2)
Quarter: 2014Q3

REPORT INFORMATION
  Report Type: Spontaneous
  Country: US (occurrence: None)
  Receive Date: 20140725
  Receipt Date: 20140807
  Transmission Date: 20150326
  Serious: Yes (Hospitalization)
  Sender: FDA-Public Use
  Company Number: 2448772

PATIENT
  Age: 73 Year
  Sex: Male
  Weight: 59.8 kg

DRUGS (3)
  1. SODIUM CHLORIDE 0.9% INJECTION, USP (SODIUM CHLORIDE) [Suspect]
     Active Substance: SODIUM CHLORIDE
     Indication: INFECTION
     Route: 042
     Dates: start: 20140705, end: 20140705
  2. VANCOMYCIN [Concomitant]
     Active Substance: VANCOMYCIN
     Route: 042
     Dates: start: 20140705, end: 20140705
  3. SODIUM CHLORIDE 0.9% INJECTION, USP (SODIUM CHLORIDE) [Suspect]
     Active Substance: SODIUM CHLORIDE
     Indication: DIALYSIS RELATED COMPLICATION
     Route: 042
     Dates: start: 20140705, end: 20140705

REACTIONS (3)
  - Hypersensitivity [None]
  - Dyspnoea [None]
  - Cyanosis [None]

NARRATIVE: CASE EVENT DATE: 20140705
